FAERS Safety Report 4511303-4 (Version None)
Quarter: 2004Q4

REPORT INFORMATION
  Report Type: 
  Country: None (occurrence: None)
  Receive Date: 20041123
  Receipt Date: 20041123
  Transmission Date: 20050328
  Serious: Yes (Hospitalization)
  Sender: FDA-Public Use
  Company Number: None

PATIENT
  Age: 66 Year
  Sex: Male
  Weight: 98.4 kg

DRUGS (2)
  1. LOVASTATIN [Suspect]
     Indication: HYPERCHOLESTEROLAEMIA
     Dosage: 80 MG , DAILY ORAL
     Route: 048
     Dates: start: 20030714, end: 20040816
  2. GEMFIBROZIL [Suspect]

REACTIONS (2)
  - MYOPATHY [None]
  - RHABDOMYOLYSIS [None]
